FAERS Safety Report 8919734 (Version 2)
Quarter: 2012Q4

REPORT INFORMATION
  Report Type: 
  Country: SE (occurrence: SE)
  Receive Date: 20121121
  Receipt Date: 20121217
  Transmission Date: 20130627
  Serious: Yes (Hospitalization)
  Sender: FDA-Public Use
  Company Number: SE-ELI_LILLY_AND_COMPANY-SE201211002399

PATIENT
  Age: 63 Year
  Sex: Female

DRUGS (8)
  1. ZYPREXA [Suspect]
     Indication: PSYCHOTIC DISORDER
     Dosage: 1 DF, unknown
     Dates: end: 20120915
  2. MIRTAZAPIN [Concomitant]
     Indication: PSYCHOTIC DISORDER
     Dosage: 30 mg, bid
  3. MIRTAZAPIN [Concomitant]
     Dosage: 30 mg, qd
  4. KALCIPOS-D [Concomitant]
     Dosage: 1 DF, unknown
     Route: 048
  5. LAMOTRIGIN [Concomitant]
     Dosage: 1 DF, unknown
  6. NITRAZEPAM [Concomitant]
     Dosage: 5 mg, unknown
  7. RESULAX [Concomitant]
     Dosage: 1 DF, unknown
  8. LAKTULOS [Concomitant]
     Dosage: 1 DF, unknown

REACTIONS (4)
  - Muscle rigidity [Recovered/Resolved]
  - Restlessness [Recovered/Resolved]
  - Hyperkinesia [Recovered/Resolved]
  - Feeling jittery [Recovered/Resolved]
